FAERS Safety Report 23794680 (Version 1)
Quarter: 2024Q2

REPORT INFORMATION
  Report Type: Spontaneous
  Country: US (occurrence: None)
  Receive Date: 20240426
  Receipt Date: 20240426
  Transmission Date: 20240716
  Serious: No
  Sender: FDA-Public Use
  Company Number: None

PATIENT
  Sex: Male
  Weight: 82.15 kg

DRUGS (1)
  1. TEMOZOLOMIDE [Suspect]
     Active Substance: TEMOZOLOMIDE
     Dates: end: 20230510

REACTIONS (2)
  - Fibrin D dimer increased [None]
  - Pulmonary embolism [None]

NARRATIVE: CASE EVENT DATE: 20230529
